FAERS Safety Report 5603210-0 (Version None)
Quarter: 2008Q1

REPORT INFORMATION
  Report Type: 
  Country: None (occurrence: None)
  Receive Date: 20080125
  Receipt Date: 20080114
  Transmission Date: 20080703
  Serious: Yes (Hospitalization)
  Sender: FDA-Public Use
  Company Number: IT-PFIZER INC-2008003947

PATIENT
  Sex: Female

DRUGS (3)
  1. SALAZOPYRIN EN [Suspect]
     Indication: CROHN'S DISEASE
     Route: 048
  2. METRONIDAZOLE [Concomitant]
     Indication: CROHN'S DISEASE
     Route: 048
  3. CIPROFLOXACIN [Concomitant]
     Indication: CROHN'S DISEASE
     Route: 048

REACTIONS (1)
  - PULMONARY FIBROSIS [None]
